FAERS Safety Report 14776036 (Version 1)
Quarter: 2018Q2

REPORT INFORMATION
  Report Type: Spontaneous
  Country: MX (occurrence: MX)
  Receive Date: 20180418
  Receipt Date: 20180418
  Transmission Date: 20180711
  Serious: Yes (Other)
  Sender: FDA-Public Use
  Company Number: MX-BAYER-2018-074990

PATIENT
  Age: 47 Year
  Weight: 98 kg

DRUGS (1)
  1. GADOVIST [Suspect]
     Active Substance: GADOBUTROL
     Indication: PARALYSIS
     Dosage: 8 ML, ONCE

REACTIONS (3)
  - Hypoxia [None]
  - Cyanosis [None]
  - Tachycardia [None]
